FAERS Safety Report 6020235-4 (Version None)
Quarter: 2008Q4

REPORT INFORMATION
  Report Type: 
  Country: None (occurrence: None)
  Receive Date: 20081226
  Receipt Date: 20081216
  Transmission Date: 20090506
  Serious: Yes (Other)
  Sender: FDA-Public Use
  Company Number: PHHY2008DE17103

PATIENT
  Sex: Female

DRUGS (12)
  1. FEMARA [Suspect]
     Indication: BREAST CANCER
     Dosage: 2.5 MG (1DFDAY)
     Route: 048
     Dates: start: 20020101, end: 20060101
  2. FEMARA [Suspect]
     Dosage: 2 DF/DAY
     Route: 048
     Dates: start: 20060101
  3. FOSAMAX [Concomitant]
     Indication: METASTASES TO BONE
     Dosage: UNK
     Dates: start: 20020101, end: 20070101
  4. IBANDRONATE [Concomitant]
     Indication: METASTASES TO BONE
     Dosage: 3 X PER YEAR
     Dates: start: 20070101
  5. TORSEMIDE [Concomitant]
     Dosage: 5 MG
  6. NORVASC [Concomitant]
     Dosage: 5 MG
  7. TROMCARDIN FORTE [Concomitant]
  8. ZYLORIC ^FRESENIUS^ [Concomitant]
     Dosage: 300 MG
  9. CIBACEN [Concomitant]
     Dosage: 10 MG
  10. EUTHYROX [Concomitant]
  11. DOCITON [Concomitant]
  12. CARDULAR PP [Concomitant]
     Dosage: 4 MG

REACTIONS (11)
  - ARTHRALGIA [None]
  - DRY SKIN [None]
  - HYPERCHOLESTEROLAEMIA [None]
  - INCREASED APPETITE [None]
  - MACULAR DEGENERATION [None]
  - METASTASES TO BONE [None]
  - MYALGIA [None]
  - OESTRADIOL INCREASED [None]
  - ONYCHOCLASIS [None]
  - OVERDOSE [None]
  - WEIGHT INCREASED [None]
